FAERS Safety Report 4729555-4 (Version None)
Quarter: 2005Q3

REPORT INFORMATION
  Report Type: 
  Country: None (occurrence: None)
  Receive Date: 20050801
  Receipt Date: 20050303
  Transmission Date: 20060218
  Serious: Yes (Hospitalization, Disabling, Other)
  Sender: FDA-Public Use
  Company Number: US-MERCK-0503USA00810

PATIENT
  Age: 44 Year
  Sex: Female
  Weight: 68 kg

DRUGS (25)
  1. VIOXX [Suspect]
     Indication: OSTEOARTHRITIS
     Route: 048
     Dates: start: 20030210, end: 20040910
  2. NORVASC [Concomitant]
     Indication: HYPERTENSION
     Route: 065
     Dates: start: 20030210
  3. OMEPRAZOLE [Concomitant]
     Indication: ANXIETY
     Route: 065
     Dates: start: 20030210, end: 20030806
  4. FOLTX [Concomitant]
     Route: 065
  5. TRAZODONE HYDROCHLORIDE [Concomitant]
     Indication: SLEEP DISORDER THERAPY
     Route: 065
  6. NASONEX [Concomitant]
     Indication: SEASONAL ALLERGY
     Route: 065
  7. LEXAPRO [Concomitant]
     Route: 065
  8. GEMFIBROZIL [Concomitant]
     Route: 065
  9. BACLOFEN [Concomitant]
     Indication: MUSCLE SPASMS
     Route: 065
  10. WARFARIN SODIUM [Concomitant]
     Route: 065
     Dates: start: 19990318
  11. HYDROXYCHLOROQUINE SULFATE [Concomitant]
     Indication: SYSTEMIC LUPUS ERYTHEMATOSUS
     Route: 065
  12. RANITIDINE [Concomitant]
     Route: 065
  13. LIPITOR [Concomitant]
     Indication: HYPERCHOLESTEROLAEMIA
     Route: 065
     Dates: start: 20030328
  14. CEPHALEXIN [Concomitant]
     Indication: INFECTION
     Route: 065
  15. DEPAKOTE [Concomitant]
     Indication: BIPOLAR DISORDER
     Route: 065
     Dates: start: 19990729
  16. ALLEGRA [Concomitant]
     Indication: SEASONAL ALLERGY
     Route: 065
  17. ALPRAZOLAM [Concomitant]
     Indication: ANXIETY
     Route: 065
     Dates: start: 20010823
  18. PREDNISONE [Concomitant]
     Indication: SYSTEMIC LUPUS ERYTHEMATOSUS
     Route: 065
  19. ZYRTEC [Concomitant]
     Indication: SEASONAL ALLERGY
     Route: 065
  20. ASTELIN [Concomitant]
     Route: 065
  21. FOLBEE [Concomitant]
     Route: 065
  22. ELOCON [Concomitant]
     Route: 065
  23. EPIPEN [Concomitant]
     Route: 065
  24. DARVOCET-N 100 [Concomitant]
     Indication: PAIN
     Route: 065
     Dates: start: 19990209
  25. IBUPROFEN [Concomitant]
     Indication: PAIN
     Route: 065
     Dates: start: 19990318

REACTIONS (19)
  - ABNORMAL CLOTTING FACTOR [None]
  - ADVERSE EVENT [None]
  - CEREBROVASCULAR ACCIDENT [None]
  - CHEST PAIN [None]
  - EMOTIONAL DISTRESS [None]
  - FACE INJURY [None]
  - FACIAL BONES FRACTURE [None]
  - FIBROMYALGIA [None]
  - GALLBLADDER DISORDER [None]
  - GASTROOESOPHAGEAL REFLUX DISEASE [None]
  - NASAL OPERATION [None]
  - PANCREATITIS [None]
  - PANIC ATTACK [None]
  - PANIC DISORDER [None]
  - PULMONARY EMBOLISM [None]
  - ROAD TRAFFIC ACCIDENT [None]
  - SKELETAL INJURY [None]
  - THROMBOSIS [None]
  - TRANSIENT ISCHAEMIC ATTACK [None]
